FAERS Safety Report 6893357-3 (Version None)
Quarter: 2010Q3

REPORT INFORMATION
  Report Type: 
  Country: None (occurrence: None)
  Receive Date: 20100731
  Receipt Date: 20090819
  Transmission Date: 20110219
  Serious: No
  Sender: FDA-Public Use
  Company Number: US-PFIZER INC-2009258972

PATIENT
  Sex: Male
  Weight: 70.3 kg

DRUGS (8)
  1. LIPITOR [Suspect]
     Indication: BLOOD CHOLESTEROL INCREASED
     Dosage: 10 MG, 1X/DAY DAILY DOSE: 10 MG
     Route: 048
     Dates: end: 20090813
  2. NIACIN [Concomitant]
     Dosage: UNK
  3. MONTELUKAST SODIUM [Concomitant]
     Dosage: UNK
  4. METOCLOPRAMIDE [Concomitant]
     Dosage: UNK
  5. AMITRIPTYLINE [Concomitant]
     Dosage: UNK
  6. NEXIUM [Concomitant]
     Dosage: UNK
  7. ANDROGEL [Concomitant]
     Dosage: UNK
  8. TERIPARATIDE [Concomitant]
     Dosage: UNK

REACTIONS (2)
  - ARTHRALGIA [None]
  - MYALGIA [None]
